FAERS Safety Report 6585165-8 (Version None)
Quarter: 2010Q1

REPORT INFORMATION
  Report Type: 
  Country: None (occurrence: None)
  Receive Date: 20100217
  Receipt Date: 20100129
  Transmission Date: 20100710
  Serious: Yes (Disabling)
  Sender: FDA-Public Use
  Company Number: JP-PFIZER INC-2010019838

PATIENT
  Age: 65 Year
  Sex: Female
  Weight: 58 kg

DRUGS (4)
  1. SUNITINIB MALATE [Suspect]
     Indication: RENAL CELL CARCINOMA
     Dosage: 37.5 MG, 1X/DAY
     Route: 048
     Dates: start: 20091010
  2. NOVORAPID [Concomitant]
     Dosage: UNK
     Route: 058
  3. URSO 250 [Concomitant]
     Dosage: UNK
     Route: 048
     Dates: start: 20091027
  4. GLYCYRON [Concomitant]
     Dosage: UNK
     Route: 048
     Dates: start: 20091028

REACTIONS (1)
  - FACIAL PALSY [None]
